FAERS Safety Report 14844388 (Version 1)
Quarter: 2018Q2

REPORT INFORMATION
  Report Type: Spontaneous
  Country: US (occurrence: US)
  Receive Date: 20180503
  Receipt Date: 20180503
  Transmission Date: 20180711
  Serious: No
  Sender: FDA-Public Use
  Company Number: US-009507513-1804USA012041

PATIENT
  Age: 23 Year
  Sex: Female

DRUGS (3)
  1. RALTEGRAVIR POTASSIUM [Suspect]
     Active Substance: RALTEGRAVIR POTASSIUM
     Dosage: 800 DF, UNK; STARTING SINCE GESTATIONAL WEEK 0
  2. ZIDOVUDINE. [Suspect]
     Active Substance: ZIDOVUDINE
     Dosage: 2000 DF; STARTING AT WEEK 39 OF GESTATIONAL AGE.
     Route: 042
  3. EMTRICITABINE (+) TENOFOVIR DISOPROXIL FUMARATE [Suspect]
     Active Substance: EMTRICITABINE\TENOFOVIR DISOPROXIL
     Dosage: 1 DF, UNK; STARTING SINCE GESTATIONAL WEEK 0
     Route: 048

REACTIONS (1)
  - Exposure during pregnancy [Recovered/Resolved]
